FAERS Safety Report 18368638 (Version 1)
Quarter: 2020Q4

REPORT INFORMATION
  Report Type: Report from Study
  Country: None (occurrence: CZ)
  Receive Date: 20201010
  Receipt Date: 20201010
  Transmission Date: 20210114
  Serious: Yes (Hospitalization)
  Sender: FDA-Public Use
  Company Number: CZ-ABBVIE-20K-217-3598210-00

PATIENT
  Age: 67 Year
  Sex: Female

DRUGS (1)
  1. HUMIRA [Suspect]
     Active Substance: ADALIMUMAB
     Indication: RHEUMATOID ARTHRITIS
     Route: 058
     Dates: start: 20200528, end: 20200610

REACTIONS (7)
  - Pyrexia [Recovered/Resolved]
  - Injection site pruritus [Recovered/Resolved]
  - Injection site erythema [Recovered/Resolved]
  - Chills [Recovered/Resolved]
  - Sensation of foreign body [Recovered/Resolved]
  - Rash maculo-papular [Not Recovered/Not Resolved]
  - Drug eruption [Recovered/Resolved]

NARRATIVE: CASE EVENT DATE: 2020
